FAERS Safety Report 9236742 (Version 2)
Quarter: 2013Q2

REPORT INFORMATION
  Report Type: Spontaneous
  Country: JP (occurrence: JP)
  Receive Date: 20130417
  Receipt Date: 20130430
  Transmission Date: 20140414
  Serious: Yes (Hospitalization)
  Sender: FDA-Public Use
  Company Number: JP-GLAXOSMITHKLINE-B0883294A

PATIENT
  Age: 74 Year
  Sex: Female

DRUGS (4)
  1. TYKERB [Suspect]
     Indication: BREAST CANCER
     Dosage: 1250MG PER DAY
     Route: 048
     Dates: start: 20130124, end: 20130404
  2. TRAMAL [Concomitant]
     Indication: CANCER PAIN
     Dosage: 50MG FOUR TIMES PER DAY
     Route: 048
     Dates: start: 20130301, end: 20130307
  3. TRAMAL [Concomitant]
     Indication: CANCER PAIN
     Dosage: 50MG FOUR TIMES PER DAY
     Route: 048
     Dates: start: 20130404, end: 20130404
  4. XELODA [Concomitant]
     Indication: BREAST CANCER
     Dosage: 1200MG TWICE PER DAY
     Route: 048
     Dates: start: 20130124, end: 20130404

REACTIONS (2)
  - Stress cardiomyopathy [Recovering/Resolving]
  - Stress cardiomyopathy [Not Recovered/Not Resolved]
